FAERS Safety Report 7599320-1 (Version None)
Quarter: 2011Q3

REPORT INFORMATION
  Report Type: 
  Country: None (occurrence: None)
  Receive Date: 20110711
  Receipt Date: 20110624
  Transmission Date: 20111222
  Serious: Yes (Hospitalization, Other)
  Sender: FDA-Public Use
  Company Number: US-BAYER-2011-023878

PATIENT
  Age: 21 Year
  Sex: Female
  Weight: 97.506 kg

DRUGS (3)
  1. ACETAMINOPHEN AND CODEINE PHOSPHATE #3 [Concomitant]
  2. YAZ [Suspect]
     Dosage: UNK
     Route: 048
     Dates: start: 20090501, end: 20100101
  3. CONCERTA [Concomitant]
     Indication: ATTENTION DEFICIT/HYPERACTIVITY DISORDER
     Dosage: UNK
     Dates: start: 20090901

REACTIONS (3)
  - PAIN [None]
  - INJURY [None]
  - GALLBLADDER DISORDER [None]
